FAERS Safety Report 18035131 (Version 1)
Quarter: 2020Q3

REPORT INFORMATION
  Report Type: Spontaneous
  Country: US (occurrence: US)
  Receive Date: 20200715
  Receipt Date: 20200715
  Transmission Date: 20201103
  Serious: No
  Sender: FDA-Public Use
  Company Number: None

PATIENT

DRUGS (3)
  1. CLIMARA [Suspect]
     Active Substance: ESTRADIOL
  2. ESTRADIOL ESTRADIOL TRANSDERMAL SYSTEM [Suspect]
     Active Substance: ESTRADIOL
     Route: 061
  3. ESTRADIOL ESTRADIOL TRANSDERMAL SYSTEM [Suspect]
     Active Substance: ESTRADIOL

REACTIONS (3)
  - Inappropriate schedule of product administration [None]
  - Circumstance or information capable of leading to medication error [None]
  - Product use complaint [None]
